FAERS Safety Report 6116874-2 (Version None)
Quarter: 2009Q1

REPORT INFORMATION
  Report Type: 
  Country: None (occurrence: None)
  Receive Date: 20090314
  Receipt Date: 20081230
  Transmission Date: 20090719
  Serious: No
  Sender: FDA-Public Use
  Company Number: US-ABBOTT-08P-163-0495273-00

PATIENT
  Sex: Female
  Weight: 59.02 kg

DRUGS (6)
  1. HUMIRA [Suspect]
     Indication: RHEUMATOID ARTHRITIS
     Route: 058
     Dates: start: 20030101, end: 20080101
  2. HUMIRA [Suspect]
     Dates: start: 20080101
  3. METHOTREXATE [Concomitant]
     Indication: DRUG USE FOR UNKNOWN INDICATION
  4. SYNTHROID [Concomitant]
     Indication: HYPOTHYROIDISM
  5. PREDNISONE [Concomitant]
     Indication: DRUG USE FOR UNKNOWN INDICATION
     Route: 048
  6. AMBIEN [Concomitant]
     Indication: SLEEP DISORDER THERAPY

REACTIONS (2)
  - MUSCULOSKELETAL STIFFNESS [None]
  - PAIN [None]
